FAERS Safety Report 9132753 (Version 2)
Quarter: 2013Q2

REPORT INFORMATION
  Report Type: Report from Study
  Country: FR (occurrence: FR)
  Receive Date: 20130301
  Receipt Date: 20130418
  Transmission Date: 20140414
  Serious: Yes (Hospitalization, Other)
  Sender: FDA-Public Use
  Company Number: FR-BRISTOL-MYERS SQUIBB COMPANY-15407828

PATIENT
  Age: 51 Year
  Sex: Female
  Weight: 64 kg

DRUGS (1)
  1. IPILIMUMAB [Suspect]
     Indication: MALIGNANT MELANOMA
     Dosage: 3 INF;BATCH NO:9H45092,9H45092.9B,9H45094.20JUL10-14OCT10(1ST INF),30AUG11-12NOV11(2ND INF).
     Route: 042
     Dates: start: 20100720, end: 20111112

REACTIONS (4)
  - Renal failure acute [Recovered/Resolved]
  - Hepatocellular injury [Unknown]
  - Vomiting [Recovered/Resolved]
  - Diarrhoea [Recovered/Resolved]
